FAERS Safety Report 12906086 (Version 1)
Quarter: 2016Q4

REPORT INFORMATION
  Report Type: Spontaneous
  Country: US (occurrence: US)
  Receive Date: 20161102
  Receipt Date: 20161102
  Transmission Date: 20170207
  Serious: Yes (Life-Threatening, Hospitalization, Other)
  Sender: FDA-Public Use
  Company Number: None

PATIENT
  Age: 69 Year
  Sex: Male
  Weight: 92.99 kg

DRUGS (9)
  1. METFORMIN [Concomitant]
     Active Substance: METFORMIN HYDROCHLORIDE
  2. ASPIRIN. [Concomitant]
     Active Substance: ASPIRIN
  3. HYDROCHLOROTHIAZIDE. [Concomitant]
     Active Substance: HYDROCHLOROTHIAZIDE
  4. HYOSCYAMINE. [Suspect]
     Active Substance: HYOSCYAMINE
     Indication: IRRITABLE BOWEL SYNDROME
     Dosage: HYOSCYAMINE - 2 PILLS - BID - PO - ?RX# 117570406877
     Route: 048
     Dates: start: 20160407, end: 20160412
  5. GLIMEPIRIDE. [Concomitant]
     Active Substance: GLIMEPIRIDE
  6. BILATERAL A F.OS (ANKLE FOOT OTHOSIS) [Concomitant]
  7. DETROL-LA [Concomitant]
  8. AVODART [Concomitant]
     Active Substance: DUTASTERIDE
  9. ALLEGRA [Concomitant]
     Active Substance: FEXOFENADINE HYDROCHLORIDE

REACTIONS (6)
  - Pulmonary oedema [None]
  - Seizure [None]
  - Aggression [None]
  - Dry mouth [None]
  - Confusional state [None]
  - Mental status changes [None]

NARRATIVE: CASE EVENT DATE: 20160512
